FAERS Safety Report 11750202 (Version 3)
Quarter: 2015Q4

REPORT INFORMATION
  Report Type: Report from Study
  Country: US (occurrence: US)
  Receive Date: 20151118
  Receipt Date: 20151217
  Transmission Date: 20160304
  Serious: Yes (Other)
  Sender: FDA-Public Use
  Company Number: US-JNJFOC-20150317545

PATIENT
  Age: 80 Year
  Sex: Female
  Weight: 48 kg

DRUGS (4)
  1. IMBRUVICA [Suspect]
     Active Substance: IBRUTINIB
     Indication: CHRONIC LYMPHOCYTIC LEUKAEMIA
     Route: 048
     Dates: start: 20151028
  2. IMBRUVICA [Suspect]
     Active Substance: IBRUTINIB
     Indication: CHRONIC LYMPHOCYTIC LEUKAEMIA
     Route: 048
     Dates: start: 2015, end: 201510
  3. PREDNISONE. [Concomitant]
     Active Substance: PREDNISONE
     Route: 065
  4. IMBRUVICA [Suspect]
     Active Substance: IBRUTINIB
     Indication: CHRONIC LYMPHOCYTIC LEUKAEMIA
     Route: 048
     Dates: start: 20150224, end: 2015

REACTIONS (23)
  - Pneumonia [Recovering/Resolving]
  - Therapeutic response unexpected [Not Recovered/Not Resolved]
  - Ligament pain [Not Recovered/Not Resolved]
  - Disease progression [Unknown]
  - Autoimmune haemolytic anaemia [Unknown]
  - Arthralgia [Not Recovered/Not Resolved]
  - Ear pain [Unknown]
  - Contusion [Not Recovered/Not Resolved]
  - Headache [Recovered/Resolved]
  - Incorrect dose administered [Not Recovered/Not Resolved]
  - Eye disorder [Unknown]
  - Platelet count decreased [Recovered/Resolved]
  - White blood cell count increased [Unknown]
  - Epistaxis [Recovered/Resolved]
  - Cough [Not Recovered/Not Resolved]
  - Haemoglobin increased [Recovered/Resolved]
  - Yellow skin [Recovered/Resolved]
  - Inappropriate schedule of drug administration [Recovered/Resolved]
  - Diarrhoea [Recovered/Resolved]
  - Myalgia [Unknown]
  - Chills [Recovered/Resolved]
  - Bone disorder [Unknown]
  - Ear infection [Not Recovered/Not Resolved]

NARRATIVE: CASE EVENT DATE: 2015
